FAERS Safety Report 12776784 (Version 1)
Quarter: 2016Q3

REPORT INFORMATION
  Report Type: Spontaneous
  Country: US (occurrence: US)
  Receive Date: 20160923
  Receipt Date: 20160923
  Transmission Date: 20161109
  Serious: No
  Sender: FDA-Public Use
  Company Number: US-009507513-1609USA002049

PATIENT
  Sex: Female

DRUGS (2)
  1. PREGNYL [Suspect]
     Active Substance: CHORIOGONADOTROPIN ALFA
     Indication: PREGNANCY
  2. PREGNYL [Suspect]
     Active Substance: CHORIOGONADOTROPIN ALFA
     Indication: INFERTILITY
     Dosage: CONCENTRATION: 10000 UNITS/VIAL; 5000 UNIT TWICE WEEKLY
     Route: 058
     Dates: start: 20160830

REACTIONS (2)
  - Product use issue [Unknown]
  - Maternal exposure before pregnancy [Unknown]
